FAERS Safety Report 8109355-8 (Version None)
Quarter: 2012Q1

REPORT INFORMATION
  Report Type: 
  Country: None (occurrence: None)
  Receive Date: 20120202
  Receipt Date: 20120128
  Transmission Date: 20120608
  Serious: Yes (Life-Threatening, Hospitalization)
  Sender: FDA-Public Use
  Company Number: CHPA2012US001993

PATIENT
  Age: 25 Year
  Sex: Male

DRUGS (1)
  1. EXCEDRIN (MIGRAINE) [Suspect]
     Indication: MIGRAINE
     Dosage: 2 DF, UNK
     Route: 048
     Dates: start: 20110101, end: 20110623

REACTIONS (4)
  - HAEMORRHAGE [None]
  - GASTROINTESTINAL DISORDER [None]
  - ULCER HAEMORRHAGE [None]
  - ULCER [None]
